FAERS Safety Report 15239748 (Version 1)
Quarter: 2018Q3

REPORT INFORMATION
  Report Type: Spontaneous
  Country: US (occurrence: US)
  Receive Date: 20180803
  Receipt Date: 20180803
  Transmission Date: 20181010
  Serious: Yes (Death, Other)
  Sender: FDA-Public Use
  Company Number: US-VIIV HEALTHCARE LIMITED-US2018GSK137687

PATIENT
  Age: 64 Year
  Sex: Male

DRUGS (3)
  1. DOLUTEGRAVIR [Suspect]
     Active Substance: DOLUTEGRAVIR
     Indication: HIV INFECTION
  2. TENOFOVIR DISOPROXIL FUMARATE. [Suspect]
     Active Substance: TENOFOVIR DISOPROXIL FUMARATE
     Indication: HIV INFECTION
  3. EMTRICITABINE [Suspect]
     Active Substance: EMTRICITABINE
     Indication: HIV INFECTION

REACTIONS (10)
  - Lymphoma [Unknown]
  - Mental impairment [Unknown]
  - Tumour lysis syndrome [Unknown]
  - Blood phosphorus increased [Unknown]
  - Immune reconstitution inflammatory syndrome [Unknown]
  - Lymphadenopathy [Unknown]
  - Death [Fatal]
  - Hypercalcaemia [Unknown]
  - Blood creatinine increased [Unknown]
  - Blood uric acid increased [Unknown]
